FAERS Safety Report 5670967-2 (Version None)
Quarter: 2008Q1

REPORT INFORMATION
  Report Type: 
  Country: None (occurrence: None)
  Receive Date: 20080318
  Receipt Date: 20080313
  Transmission Date: 20080703
  Serious: Yes (Death)
  Sender: FDA-Public Use
  Company Number: JP-AVENTIS-200810619JP

PATIENT
  Sex: Male

DRUGS (4)
  1. TAXOTERE [Suspect]
     Indication: PROSTATE CANCER
     Dosage: DOSE: 70 MG/M2
     Route: 041
  2. ZOMETA [Concomitant]
  3. WARFARIN SODIUM [Concomitant]
  4. PREDNISOLONE [Concomitant]

REACTIONS (1)
  - INTERSTITIAL LUNG DISEASE [None]
